FAERS Safety Report 17794099 (Version 2)
Quarter: 2020Q3

REPORT INFORMATION
  Report Type: Spontaneous
  Country: IT (occurrence: IT)
  Receive Date: 20200515
  Receipt Date: 20200709
  Transmission Date: 20201102
  Serious: Yes (Death, Other)
  Sender: FDA-Public Use
  Company Number: IT-MYLANLABS-2020M1047530

PATIENT
  Age: 66 Year
  Sex: Male

DRUGS (1)
  1. SILDENAFIL. [Suspect]
     Active Substance: SILDENAFIL
     Indication: PRODUCT USED FOR UNKNOWN INDICATION
     Dosage: UNK, 50?100 MG, 30?60 MIN BEFORE SEX FROM MORE THAN ONE YEAR
     Route: 048

REACTIONS (5)
  - Pericardial haemorrhage [Fatal]
  - Drug abuse [Fatal]
  - Angina pectoris [Fatal]
  - Drug level increased [Fatal]
  - Cardiac tamponade [Fatal]
